FAERS Safety Report 7044157-5 (Version None)
Quarter: 2010Q4

REPORT INFORMATION
  Report Type: 
  Country: None (occurrence: None)
  Receive Date: 20101013
  Receipt Date: 20101008
  Transmission Date: 20110411
  Serious: Yes (Other)
  Sender: FDA-Public Use
  Company Number: US-PFIZER INC-2010128312

PATIENT
  Sex: Female

DRUGS (2)
  1. ESTRING [Suspect]
     Dosage: UNK
     Dates: start: 20100401
  2. SYNTHROID [Concomitant]
     Indication: HYPOTHYROIDISM
     Dosage: 112 UG, UNK

REACTIONS (1)
  - VULVOVAGINAL MYCOTIC INFECTION [None]
